FAERS Safety Report 6171150-7 (Version None)
Quarter: 2009Q2

REPORT INFORMATION
  Report Type: 
  Country: None (occurrence: None)
  Receive Date: 20090429
  Receipt Date: 20090423
  Transmission Date: 20091009
  Serious: Yes (Other)
  Sender: FDA-Public Use
  Company Number: DE-B.I. PHARMACEUTICALS,INC./RIDGEFIELD-2009-DE-03319DE

PATIENT
  Age: 78 Year
  Sex: Female
  Weight: 78 kg

DRUGS (4)
  1. MELOXICAM [Suspect]
     Indication: INTERVERTEBRAL DISC PROTRUSION
     Dosage: 1ANZ
     Route: 048
     Dates: start: 20070122, end: 20070205
  2. NOVALGIN [Suspect]
     Indication: PAIN
     Dosage: 1- 2 X WEEKLY 20 DOPS
     Route: 048
     Dates: start: 20070205, end: 20070510
  3. NOVAMINSULFON [Suspect]
     Indication: PAIN
     Dosage: 1ANZ
     Route: 048
     Dates: start: 20070511, end: 20070525
  4. AMITRIPTYLINE HCL [Suspect]
     Indication: SLEEP DISORDER
     Dosage: 12.5MG
     Route: 048
     Dates: start: 20030101, end: 20070708

REACTIONS (2)
  - AUTOIMMUNE THROMBOCYTOPENIA [None]
  - DERMATITIS ALLERGIC [None]
